FAERS Safety Report 7407377-3 (Version None)
Quarter: 2011Q2

REPORT INFORMATION
  Report Type: 
  Country: None (occurrence: None)
  Receive Date: 20110411
  Receipt Date: 20110406
  Transmission Date: 20111010
  Serious: Yes (Hospitalization)
  Sender: FDA-Public Use
  Company Number: US-MERCK-1104USA00689

PATIENT
  Age: 19 Year
  Sex: Male

DRUGS (4)
  1. BENZTROPINE MESYLATE [Concomitant]
     Route: 065
  2. OMEGA-3 MARINE TRIGLYCERIDES [Concomitant]
     Route: 065
  3. PROPECIA [Suspect]
     Indication: ALOPECIA
     Route: 048
     Dates: start: 20100101
  4. FLUPHENAZINE [Concomitant]
     Route: 065

REACTIONS (3)
  - BIPOLAR DISORDER [None]
  - SCHIZOPHRENIA [None]
  - MANIA [None]
